FAERS Safety Report 6591049-1 (Version None)
Quarter: 2010Q1

REPORT INFORMATION
  Report Type: 
  Country: None (occurrence: None)
  Receive Date: 20100212
  Receipt Date: 20100126
  Transmission Date: 20100710
  Serious: Yes (Other)
  Sender: FDA-Public Use
  Company Number: 230345M09USA

PATIENT
  Age: 47 Year
  Sex: Female
  Weight: 111 kg

DRUGS (6)
  1. REBIF [Suspect]
     Indication: MULTIPLE SCLEROSIS
     Dosage: 44 MCG, 3 IN 1 WEEKS
     Dates: start: 20041001, end: 20090615
  2. AMANTADINE HCL [Concomitant]
  3. CYMBALTA [Concomitant]
  4. BACLOFEN [Concomitant]
  5. BUPROPION HCL [Concomitant]
  6. IBUPROFEN [Concomitant]

REACTIONS (1)
  - HAEMOLYTIC ANAEMIA [None]
